FAERS Safety Report 11077998 (Version 1)
Quarter: 2015Q2

REPORT INFORMATION
  Report Type: Spontaneous
  Country: US (occurrence: None)
  Receive Date: 20150429
  Receipt Date: 20150429
  Transmission Date: 20150821
  Serious: No
  Sender: FDA-Public Use
  Company Number: None

PATIENT
  Age: 53 Year
  Sex: Female
  Weight: 90.72 kg

DRUGS (20)
  1. OXYMORPHONE ER [Suspect]
     Active Substance: OXYMORPHONE
     Indication: BACK INJURY
     Route: 048
     Dates: start: 20150421, end: 20150428
  2. COQ10 [Concomitant]
     Active Substance: UBIDECARENONE
  3. MULTIVITAMIN [Concomitant]
     Active Substance: VITAMINS
  4. OXYMORPHONE ER [Suspect]
     Active Substance: OXYMORPHONE
     Indication: PAIN
     Route: 048
     Dates: start: 20150421, end: 20150428
  5. PREDNISONE. [Concomitant]
     Active Substance: PREDNISONE
  6. URIBEL [Concomitant]
     Active Substance: HYOSCYAMINE SULFATE\METHENAMINE\METHYLENE BLUE\PHENYL SALICYLATE\SODIUM PHOSPHATE, MONOBASIC, MONOHYDRATE
  7. D3 [Concomitant]
     Active Substance: 25-HYDROXYCHOLECALCIFEROL, 5-TRANS-
  8. FLAX OIL [Concomitant]
  9. 5-HTP [Concomitant]
     Active Substance: OXITRIPTAN
  10. VITAMIN B12 [Concomitant]
     Active Substance: CYANOCOBALAMIN
  11. OXYCONTIN [Concomitant]
     Active Substance: OXYCODONE HYDROCHLORIDE
  12. OMEPRAZOLE. [Concomitant]
     Active Substance: OMEPRAZOLE
  13. FOLIC ACID. [Concomitant]
     Active Substance: FOLIC ACID
  14. MAGNESIUM MALATE [Concomitant]
  15. ACIDOPHILUS [Concomitant]
     Active Substance: LACTOBACILLUS ACIDOPHILUS
  16. METHOTREXATE [Concomitant]
     Active Substance: METHOTREXATE
  17. QUERCETIN/NETTLE [Concomitant]
  18. OXYMORPHONE ER [Suspect]
     Active Substance: OXYMORPHONE
     Indication: RHEUMATOID ARTHRITIS
     Route: 048
     Dates: start: 20150421, end: 20150428
  19. OPANA ER [Concomitant]
     Active Substance: OXYMORPHONE HYDROCHLORIDE
  20. L-LYSINE [Concomitant]
     Active Substance: LYSINE

REACTIONS (10)
  - Product solubility abnormal [None]
  - Drug effect decreased [None]
  - Dizziness [None]
  - Malaise [None]
  - Chest discomfort [None]
  - Product substitution issue [None]
  - Disorientation [None]
  - Product quality issue [None]
  - Product physical issue [None]
  - Breakthrough pain [None]

NARRATIVE: CASE EVENT DATE: 20150426
